FAERS Safety Report 24099396 (Version 1)
Quarter: 2024Q3

REPORT INFORMATION
  Report Type: Spontaneous
  Country: US (occurrence: US)
  Receive Date: 20240716
  Receipt Date: 20240716
  Transmission Date: 20241017
  Serious: No
  Sender: NOVO NORDISK
  Company Number: US-NOVOPROD-1174385

PATIENT
  Age: 23 Year
  Sex: Female

DRUGS (1)
  1. OZEMPIC [Suspect]
     Active Substance: SEMAGLUTIDE
     Indication: Body mass index
     Dosage: 1 MG, QW
     Route: 058
     Dates: start: 20221230

REACTIONS (1)
  - Pollakiuria [Not Recovered/Not Resolved]
